FAERS Safety Report 5338381-7 (Version None)
Quarter: 2007Q2

REPORT INFORMATION
  Report Type: 
  Country: None (occurrence: None)
  Receive Date: 20070530
  Receipt Date: 20070525
  Transmission Date: 20071010
  Serious: Yes (Hospitalization)
  Sender: FDA-Public Use
  Company Number: US-BAYER-200711639BWH

PATIENT
  Age: 74 Year
  Sex: Female

DRUGS (7)
  1. NEXAVAR [Suspect]
     Indication: METASTATIC RENAL CELL CARCINOMA
     Dates: start: 20070501, end: 20070501
  2. ZOMETA [Suspect]
     Dates: start: 20070517
  3. ARICEPT [Concomitant]
  4. GLYBURIDE [Concomitant]
  5. STARLIX [Concomitant]
  6. PROTONIX [Concomitant]
  7. LISINOPRIL [Concomitant]

REACTIONS (2)
  - MENTAL STATUS CHANGES [None]
  - RENAL FAILURE ACUTE [None]
